FAERS Safety Report 11603763 (Version 1)
Quarter: 2015Q4

REPORT INFORMATION
  Report Type: Report from Study
  Country: CA (occurrence: CA)
  Receive Date: 20151007
  Receipt Date: 20151007
  Transmission Date: 20160304
  Serious: Yes (Other)
  Sender: FDA-Public Use
  Company Number: CA-ABBVIE-15K-028-1474240-00

PATIENT
  Sex: Female

DRUGS (2)
  1. HUMIRA [Suspect]
     Active Substance: ADALIMUMAB
     Route: 058
     Dates: start: 2015
  2. HUMIRA [Suspect]
     Active Substance: ADALIMUMAB
     Indication: PSORIATIC ARTHROPATHY
     Route: 058
     Dates: start: 20110307, end: 2015

REACTIONS (8)
  - Cervical vertebral fracture [Unknown]
  - Psoriatic arthropathy [Unknown]
  - Fall [Recovered/Resolved]
  - Lower respiratory tract infection [Unknown]
  - Concussion [Unknown]
  - Uveitis [Unknown]
  - Nephrolithiasis [Not Recovered/Not Resolved]
  - Cystitis [Unknown]

NARRATIVE: CASE EVENT DATE: 2014
